FAERS Safety Report 13297263 (Version 1)
Quarter: 2017Q1

REPORT INFORMATION
  Report Type: Spontaneous
  Country: US (occurrence: US)
  Receive Date: 20170303
  Receipt Date: 20170303
  Transmission Date: 20170428
  Serious: Yes (Life-Threatening)
  Sender: FDA-Public Use
  Company Number: None

PATIENT
  Age: 2 Year
  Sex: Male
  Weight: 11.25 kg

DRUGS (1)
  1. AMID/CLAV [Suspect]
     Active Substance: AMOXICILLIN\CLAVULANATE POTASSIUM
     Indication: SINUSITIS
     Dosage: QUANTITY:600 TEASPOON(S);?
     Route: 048
     Dates: end: 20170221

REACTIONS (2)
  - Product quality issue [None]
  - Hypersensitivity [None]

NARRATIVE: CASE EVENT DATE: 20170226
